FAERS Safety Report 7943733-2 (Version None)
Quarter: 2011Q4

REPORT INFORMATION
  Report Type: 
  Country: None (occurrence: None)
  Receive Date: 20111128
  Receipt Date: 20111117
  Transmission Date: 20120403
  Serious: Yes (Hospitalization)
  Sender: FDA-Public Use
  Company Number: AT-ABBOTT-11P-009-0877688-00

PATIENT
  Age: 63 Year
  Sex: Male

DRUGS (1)
  1. SIXANTONE [Suspect]
     Indication: PROSTATE CANCER METASTATIC
     Route: 058
     Dates: start: 20100801

REACTIONS (6)
  - DIABETES MELLITUS [None]
  - MEDICATION ERROR [None]
  - VASCULAR GRAFT [None]
  - LIPIDS INCREASED [None]
  - CATARACT OPERATION [None]
  - OVERDOSE [None]
